FAERS Safety Report 24205828 (Version 1)
Quarter: 2024Q3

REPORT INFORMATION
  Report Type: Report from Study
  Country: CL (occurrence: CL)
  Receive Date: 20240813
  Receipt Date: 20240813
  Transmission Date: 20241016
  Serious: Yes (Hospitalization)
  Sender: BIOGEN
  Company Number: CL-BIOGEN-2024BI01277288

PATIENT
  Age: 6 Year
  Sex: Female

DRUGS (1)
  1. SPINRAZA [Suspect]
     Active Substance: NUSINERSEN
     Indication: Spinal muscular atrophy
     Dosage: LAST ADMINISTRATION ON 13JUN2024
     Route: 050
     Dates: start: 20200110

REACTIONS (5)
  - Musculoskeletal procedural complication [Recovered/Resolved]
  - Pharyngitis streptococcal [Recovered/Resolved]
  - Rhinovirus infection [Recovered/Resolved]
  - Gait disturbance [Unknown]
  - Fatigue [Not Recovered/Not Resolved]

NARRATIVE: CASE EVENT DATE: 20240614
